FAERS Safety Report 11319501 (Version 1)
Quarter: 2015Q3

REPORT INFORMATION
  Report Type: Spontaneous
  Country: FR (occurrence: None)
  Receive Date: 20150727
  Receipt Date: 20150727
  Transmission Date: 20151125
  Serious: Yes (Hospitalization)
  Sender: FDA-Public Use
  Company Number: FR-ZYDUS-008655

PATIENT
  Age: 17 Year
  Sex: Male

DRUGS (5)
  1. RISPERIDONE(RISPERIDONE) [Suspect]
     Active Substance: RISPERIDONE
     Indication: PRODUCT USED FOR UNKNOWN INDICATION
  2. AMISULPRIDE(AMISULPRIDE) [Suspect]
     Active Substance: AMISULPRIDE
  3. OXAZEPAM. [Concomitant]
     Active Substance: OXAZEPAM
  4. ARIPIPRAZOLE(ARIPIPRAZOLE) [Suspect]
     Active Substance: ARIPIPRAZOLE
  5. LOXAPINE(LOXAPINE) [Suspect]
     Active Substance: LOXAPINE

REACTIONS (9)
  - Hepatotoxicity [None]
  - Psychiatric decompensation [None]
  - Hepatic function abnormal [None]
  - Biliary tract disorder [None]
  - Bile duct stenosis [None]
  - Gamma-glutamyltransferase increased [None]
  - Aspartate aminotransferase increased [None]
  - Cholangitis sclerosing [None]
  - Alanine aminotransferase increased [None]
